FAERS Safety Report 20897755 (Version 9)
Quarter: 2024Q2

REPORT INFORMATION
  Report Type: Report from Study
  Country: DE (occurrence: DE)
  Receive Date: 20220531
  Receipt Date: 20240418
  Transmission Date: 20240715
  Serious: Yes (Other)
  Sender: FDA-Public Use
  Company Number: DE-SA-SAC20211121000283

PATIENT
  Age: 69 Year
  Sex: Female
  Weight: 55.5 kg

DRUGS (24)
  1. DEXAMETHASONE [Suspect]
     Active Substance: DEXAMETHASONE
     Indication: Plasma cell myeloma refractory
     Dosage: 40 MG, QW
     Route: 042
     Dates: start: 20210909, end: 20210923
  2. DEXAMETHASONE [Suspect]
     Active Substance: DEXAMETHASONE
     Dosage: 20 MG, QW
     Route: 042
     Dates: start: 20211104, end: 20211119
  3. DEXAMETHASONE [Suspect]
     Active Substance: DEXAMETHASONE
     Dosage: 40 MG, QW
     Route: 042
     Dates: start: 20210803, end: 20210902
  4. DEXAMETHASONE [Suspect]
     Active Substance: DEXAMETHASONE
     Dosage: 10 MG, QW
     Route: 065
     Dates: start: 20211202, end: 20211215
  5. DEXAMETHASONE [Suspect]
     Active Substance: DEXAMETHASONE
     Dosage: 4 MG, QW
     Route: 065
     Dates: start: 20220114, end: 20220114
  6. DEXAMETHASONE [Suspect]
     Active Substance: DEXAMETHASONE
     Dosage: 10 MG, QW
     Route: 065
     Dates: start: 20211216, end: 20220103
  7. DEXAMETHASONE [Suspect]
     Active Substance: DEXAMETHASONE
     Dosage: 20 MG, QW
     Route: 042
     Dates: start: 20211007, end: 20211022
  8. CARFILZOMIB [Suspect]
     Active Substance: CARFILZOMIB
     Indication: Plasma cell myeloma refractory
     Dosage: 43 MG, QW
     Route: 065
     Dates: start: 20211006, end: 20211022
  9. CARFILZOMIB [Suspect]
     Active Substance: CARFILZOMIB
     Dosage: 43 MG, QW
     Route: 065
     Dates: start: 20210909, end: 20210923
  10. CARFILZOMIB [Suspect]
     Active Substance: CARFILZOMIB
     Dosage: 43 MG, QW
     Route: 065
     Dates: start: 20211104, end: 20211119
  11. CARFILZOMIB [Suspect]
     Active Substance: CARFILZOMIB
     Dosage: 43 MG, QW
     Route: 042
     Dates: start: 20211202, end: 20211215
  12. CARFILZOMIB [Suspect]
     Active Substance: CARFILZOMIB
     Dosage: 56 MG/M2, QW
     Route: 065
     Dates: start: 20210804, end: 20210826
  13. CARFILZOMIB [Suspect]
     Active Substance: CARFILZOMIB
     Dosage: 43 MG/M2, QW
     Route: 065
     Dates: start: 20211216, end: 20220103
  14. CARFILZOMIB [Suspect]
     Active Substance: CARFILZOMIB
     Dosage: 56 MG/M2, QW
     Route: 065
     Dates: start: 20220114, end: 20220114
  15. ISATUXIMAB [Suspect]
     Active Substance: ISATUXIMAB
     Indication: Plasma cell myeloma refractory
     Dosage: 10 MG/KG, BIW
     Route: 042
     Dates: start: 20210909, end: 20210923
  16. ISATUXIMAB [Suspect]
     Active Substance: ISATUXIMAB
     Dosage: 10 MG/KG, BIW
     Route: 042
     Dates: start: 20211104, end: 20211119
  17. ISATUXIMAB [Suspect]
     Active Substance: ISATUXIMAB
     Dosage: 10 MG/KG, BIW
     Route: 042
     Dates: start: 20211007, end: 20211022
  18. ISATUXIMAB [Suspect]
     Active Substance: ISATUXIMAB
     Dosage: 10 MG/KG, QW
     Route: 042
     Dates: start: 20210804, end: 20220902
  19. ISATUXIMAB [Suspect]
     Active Substance: ISATUXIMAB
     Dosage: 550 MG/KG, BIW
     Route: 065
     Dates: start: 20211216, end: 20220103
  20. ISATUXIMAB [Suspect]
     Active Substance: ISATUXIMAB
     Dosage: 400 MG, BIW
     Route: 042
     Dates: start: 20211202, end: 20211215
  21. ISATUXIMAB [Suspect]
     Active Substance: ISATUXIMAB
     Dosage: 550 MG, BIW
     Route: 065
     Dates: start: 20220104, end: 20220104
  22. PANTOPRAZOLE [Concomitant]
     Active Substance: PANTOPRAZOLE
     Indication: Premedication
     Dosage: UNK UNK, QCY
     Dates: start: 20210804
  23. DIMETHINDENE [Concomitant]
     Active Substance: DIMETHINDENE
     Indication: Premedication
     Dosage: UNK UNK, QCY
     Dates: start: 20210804
  24. RIBODRONAT [Concomitant]
     Indication: Radiotherapy to bone
     Dosage: UNK
     Dates: start: 20190318

REACTIONS (5)
  - Cataract [Recovered/Resolved]
  - Diarrhoea [Recovered/Resolved]
  - Pyrexia [Recovered/Resolved]
  - Bronchitis [Recovered/Resolved]
  - Drug hypersensitivity [Recovered/Resolved]

NARRATIVE: CASE EVENT DATE: 20210827
